FAERS Safety Report 13178802 (Version 3)
Quarter: 2017Q2

REPORT INFORMATION
  Report Type: Spontaneous
  Country: JP (occurrence: JP)
  Receive Date: 20170202
  Receipt Date: 20170508
  Transmission Date: 20170830
  Serious: Yes (Hospitalization, Other)
  Sender: FDA-Public Use
  Company Number: JP-ROCHE-1886721

PATIENT
  Age: 48 Year
  Sex: Female
  Weight: 52 kg

DRUGS (5)
  1. PERJETA [Suspect]
     Active Substance: PERTUZUMAB
     Indication: BREAST CANCER
     Dosage: PERJETA 420MG/14ML?MOST RECENT DOSE ON 24/DEC/2016
     Route: 041
     Dates: start: 20150808
  2. ZOLEDRONIC ACID [Concomitant]
     Active Substance: ZOLEDRONIC ACID
     Indication: METASTASES TO BONE
     Dosage: THE FRACTIONATION DOSE FREQUENCY IS UNCERTAIN. ?DOSE INTERVAL UNCERTAINTY
     Route: 065
     Dates: start: 200707
  3. HERCEPTIN [Suspect]
     Active Substance: TRASTUZUMAB
     Indication: BREAST CANCER
     Dosage: FREQUENCY UNCERTAIN?MOST RECENT DOSE ON 24/DEC/2016
     Route: 041
     Dates: start: 20150808
  4. KADCYLA [Suspect]
     Active Substance: ADO-TRASTUZUMAB EMTANSINE
     Indication: BREAST CANCER
     Dosage: DOSAGE IS UNCERTAIN.
     Route: 041
     Dates: start: 20170114, end: 20170114
  5. TEGRETOL [Concomitant]
     Active Substance: CARBAMAZEPINE
     Indication: BREAST CANCER
     Route: 048
     Dates: start: 20160823

REACTIONS (2)
  - Platelet count decreased [Unknown]
  - Intracranial tumour haemorrhage [Recovered/Resolved with Sequelae]

NARRATIVE: CASE EVENT DATE: 20170120
